FAERS Safety Report 4331527-9 (Version None)
Quarter: 2004Q2

REPORT INFORMATION
  Report Type: 
  Country: None (occurrence: None)
  Receive Date: 20040402
  Receipt Date: 20030213
  Transmission Date: 20050107
  Serious: Yes (Death, Hospitalization)
  Sender: FDA-Public Use
  Company Number: IT-MERCK-0302ITA00023

PATIENT
  Age: 39 Year
  Sex: Male

DRUGS (3)
  1. CRIXIVAN [Suspect]
     Indication: HIV INFECTION
     Route: 048
  2. LAMIVUDINE [Suspect]
     Indication: HIV INFECTION
     Route: 065
  3. STAVUDINE [Suspect]
     Indication: HIV INFECTION
     Route: 065

REACTIONS (15)
  - CYSTITIS [None]
  - EMBOLISM [None]
  - ENTEROCOCCAL SEPSIS [None]
  - FUNGAL CYSTITIS [None]
  - HAEMOGLOBIN DECREASED [None]
  - HAEMORRHAGE [None]
  - HYPERTENSION [None]
  - METABOLIC ACIDOSIS [None]
  - PANCREATIC NECROSIS [None]
  - PANCREATITIS ACUTE [None]
  - PLEURISY [None]
  - PNEUMONIA [None]
  - PSEUDOMONAL SEPSIS [None]
  - SEPSIS [None]
  - SINUS TACHYCARDIA [None]
